FAERS Safety Report 7720148-3 (Version None)
Quarter: 2011Q3

REPORT INFORMATION
  Report Type: 
  Country: None (occurrence: None)
  Receive Date: 20110824
  Receipt Date: 20110811
  Transmission Date: 20111222
  Serious: Yes (Other)
  Sender: FDA-Public Use
  Company Number: 2011AP001770

PATIENT
  Age: 33 Year
  Sex: Female

DRUGS (1)
  1. FAMCICLOVIR [Suspect]
     Indication: CARDIAC DISORDER
     Dosage: 1 TAB; BID PO
     Route: 048

REACTIONS (3)
  - PALPITATIONS [None]
  - HEART RATE INCREASED [None]
  - HYPOTENSION [None]
